FAERS Safety Report 6686115-6 (Version None)
Quarter: 2010Q2

REPORT INFORMATION
  Report Type: 
  Country: None (occurrence: None)
  Receive Date: 20100419
  Receipt Date: 20100409
  Transmission Date: 20101027
  Serious: Yes (Hospitalization)
  Sender: FDA-Public Use
  Company Number: JP-ABBOTT-10P-087-0637636-00

PATIENT
  Age: 65 Year

DRUGS (3)
  1. HUMIRA [Suspect]
     Indication: RHEUMATOID ARTHRITIS
     Route: 058
     Dates: start: 20100212, end: 20100330
  2. TACROLIMUS HYDRATE [Suspect]
     Indication: RHEUMATOID ARTHRITIS
     Dates: end: 20100402
  3. CELECOXIB [Suspect]
     Indication: GASTRITIS
     Dates: end: 20100409

REACTIONS (5)
  - FACE OEDEMA [None]
  - FLUSHING [None]
  - MUCOUS MEMBRANE DISORDER [None]
  - RASH [None]
  - STEVENS-JOHNSON SYNDROME [None]
